FAERS Safety Report 7888094-2 (Version None)
Quarter: 2011Q4

REPORT INFORMATION
  Report Type: 
  Country: None (occurrence: None)
  Receive Date: 20111102
  Receipt Date: 20111102
  Transmission Date: 20120403
  Serious: Yes (Hospitalization)
  Sender: FDA-Public Use
  Company Number: None

PATIENT
  Sex: Male
  Weight: 87 kg

DRUGS (5)
  1. CYCLOPHOSPHAMIDE [Suspect]
     Dosage: 1440 MG
  2. DOXORUBICIN HCL [Suspect]
     Dosage: 96 MG
  3. PREDNISONE [Suspect]
     Dosage: 400 MG
  4. VINCRISTINE SULFATE [Suspect]
     Dosage: 2 MG
  5. RITUXIMAB (MOAB C2B8 ANTI CD20, CHIMERIC) [Suspect]
     Dosage: 720 MG

REACTIONS (6)
  - HYPOXIA [None]
  - WHITE BLOOD CELL COUNT INCREASED [None]
  - CLOSTRIDIUM DIFFICILE COLITIS [None]
  - ASTHENIA [None]
  - PNEUMONIA [None]
  - FEBRILE NEUTROPENIA [None]
